FAERS Safety Report 13255857 (Version 1)
Quarter: 2017Q1

REPORT INFORMATION
  Report Type: Report from Study
  Country: US (occurrence: US)
  Receive Date: 20170221
  Receipt Date: 20170221
  Transmission Date: 20170428
  Serious: Yes (Hospitalization)
  Sender: FDA-Public Use
  Company Number: US-JNJFOC-20160207749

PATIENT
  Age: 64 Year
  Sex: Male

DRUGS (14)
  1. DIAZEPAM. [Concomitant]
     Active Substance: DIAZEPAM
  2. VITAMIN C [Concomitant]
     Active Substance: ASCORBIC ACID
  3. VITAMIN D [Concomitant]
     Active Substance: CHOLECALCIFEROL
  4. TYLENOL [Concomitant]
     Active Substance: ACETAMINOPHEN
  5. BIFIDOBACTERIUM LACTIS [Concomitant]
  6. WARFARIN [Concomitant]
     Active Substance: WARFARIN
  7. IMBRUVICA [Suspect]
     Active Substance: IBRUTINIB
     Indication: CHRONIC LYMPHOCYTIC LEUKAEMIA
     Route: 048
     Dates: start: 20151104
  8. DEBROX [Concomitant]
     Active Substance: CARBAMIDE PEROXIDE
  9. OMEPRAZOLE. [Concomitant]
     Active Substance: OMEPRAZOLE
  10. OFLOXACIN. [Concomitant]
     Active Substance: OFLOXACIN
  11. BENZTROPINE [Concomitant]
     Active Substance: BENZTROPINE
  12. IMBRUVICA [Suspect]
     Active Substance: IBRUTINIB
     Indication: CHRONIC LYMPHOCYTIC LEUKAEMIA
     Route: 048
     Dates: start: 20151008
  13. TRIFLUOPERAZINE [Concomitant]
     Active Substance: TRIFLUOPERAZINE\TRIFLUOPERAZINE HYDROCHLORIDE
  14. RISPERIDONE. [Concomitant]
     Active Substance: RISPERIDONE

REACTIONS (10)
  - Hypertension [Unknown]
  - Skin fragility [Unknown]
  - Blood pressure fluctuation [Unknown]
  - Adverse drug reaction [Unknown]
  - Rash [Unknown]
  - Erythema [Unknown]
  - Skin ulcer [Unknown]
  - Heart rate irregular [Unknown]
  - Pneumonia [Unknown]
  - Decubitus ulcer [Unknown]

NARRATIVE: CASE EVENT DATE: 20161003
